FAERS Safety Report 13781152 (Version 1)
Quarter: 2017Q3

REPORT INFORMATION
  Report Type: Spontaneous
  Country: US (occurrence: US)
  Receive Date: 20170723
  Receipt Date: 20170723
  Transmission Date: 20171127
  Serious: Yes (Life-Threatening, Disabling)
  Sender: FDA-Public Use
  Company Number: None

PATIENT
  Age: 55 Year
  Sex: Male
  Weight: 72 kg

DRUGS (1)
  1. DULOXETINE HCL [Suspect]
     Active Substance: DULOXETINE HYDROCHLORIDE
     Indication: DEPRESSION
     Dosage: ?          OTHER STRENGTH:MG;QUANTITY:4 CAPSULE(S);?
     Route: 048
     Dates: start: 20170614, end: 20170723

REACTIONS (9)
  - Product substitution issue [None]
  - Insomnia [None]
  - Dizziness [None]
  - Suicidal ideation [None]
  - Tachyphrenia [None]
  - Drug dose omission [None]
  - Hyperhidrosis [None]
  - Palpitations [None]
  - Drug ineffective [None]

NARRATIVE: CASE EVENT DATE: 20170619
